FAERS Safety Report 5663389-1 (Version None)
Quarter: 2008Q1

REPORT INFORMATION
  Report Type: 
  Country: None (occurrence: None)
  Receive Date: 20080313
  Receipt Date: 20080306
  Transmission Date: 20080703
  Serious: Yes (Death)
  Sender: FDA-Public Use
  Company Number: US-BAXTER-2008BH002041

PATIENT
  Age: 84 Year
  Sex: Male

DRUGS (2)
  1. HEPARIN SODIUM [Suspect]
     Indication: PROPHYLAXIS
     Dosage: DOSE UNIT:UNKNOWN
     Route: 042
     Dates: start: 20071001, end: 20071109
  2. HEPARIN SODIUM [Suspect]
     Indication: THROMBOSIS PROPHYLAXIS
     Dosage: DOSE UNIT:UNKNOWN
     Route: 042
     Dates: start: 20071001, end: 20071109

REACTIONS (5)
  - DEATH [None]
  - HYPOTENSION [None]
  - PNEUMOTHORAX [None]
  - POST PROCEDURAL HAEMORRHAGE [None]
  - RED BLOOD CELL COUNT DECREASED [None]
